FAERS Safety Report 9812245 (Version 2)
Quarter: 2014Q1

REPORT INFORMATION
  Report Type: Spontaneous
  Country: US (occurrence: US)
  Receive Date: 20140113
  Receipt Date: 20140113
  Transmission Date: 20141002
  Serious: Yes (Other)
  Sender: FDA-Public Use
  Company Number: US-ROCHE-1287933

PATIENT
  Sex: Female

DRUGS (6)
  1. XOLAIR [Suspect]
     Indication: ASTHMA
     Route: 058
     Dates: start: 20130925
  2. ASTEPRO [Concomitant]
     Route: 045
  3. PATANASE [Concomitant]
     Route: 045
  4. PROVIGIL (UNITED STATES) [Concomitant]
     Route: 065
  5. AYGESTIN [Concomitant]
     Route: 065
  6. XYREM [Concomitant]
     Dosage: 500MG PER ML
     Route: 048

REACTIONS (10)
  - Pulmonary hypertension [Not Recovered/Not Resolved]
  - Fatigue [Unknown]
  - Asthma [Unknown]
  - Somnolence [Unknown]
  - Depressed mood [Unknown]
  - Fatigue [Unknown]
  - Dyspnoea [Not Recovered/Not Resolved]
  - Chest pain [Not Recovered/Not Resolved]
  - Hypertension [Not Recovered/Not Resolved]
  - Blood potassium decreased [Not Recovered/Not Resolved]
